FAERS Safety Report 7490718-9 (Version None)
Quarter: 2011Q2

REPORT INFORMATION
  Report Type: 
  Country: None (occurrence: None)
  Receive Date: 20110517
  Receipt Date: 20110517
  Transmission Date: 20111010
  Serious: Yes (Other)
  Sender: FDA-Public Use
  Company Number: None

PATIENT
  Age: 67 Year
  Weight: 72.5755 kg

DRUGS (1)
  1. SANCTURA XR [Suspect]
     Indication: HYPERTONIC BLADDER
     Dosage: 60 MG 1 PER DAY PO
     Route: 048
     Dates: start: 20110514, end: 20110514

REACTIONS (4)
  - DRY THROAT [None]
  - VOMITING [None]
  - DIARRHOEA [None]
  - THROAT TIGHTNESS [None]
